FAERS Safety Report 17219228 (Version 1)
Quarter: 2020Q1

REPORT INFORMATION
  Report Type: Spontaneous
  Country: US (occurrence: US)
  Receive Date: 20191230
  Receipt Date: 20191230
  Transmission Date: 20200409
  Serious: Yes (Other)
  Sender: FDA-Public Use
  Company Number: None

PATIENT
  Age: 12 Year
  Sex: Male
  Weight: 36.45 kg

DRUGS (1)
  1. TAMIFLU [Suspect]
     Active Substance: OSELTAMIVIR PHOSPHATE
     Indication: INFLUENZA
     Dates: start: 20191219, end: 20191222

REACTIONS (5)
  - Hallucination [None]
  - Sleep terror [None]
  - Emotional distress [None]
  - Somnambulism [None]
  - Nightmare [None]

NARRATIVE: CASE EVENT DATE: 20191220
